FAERS Safety Report 4299433-6 (Version None)
Quarter: 2004Q1

REPORT INFORMATION
  Report Type: 
  Country: None (occurrence: None)
  Receive Date: 20040219
  Receipt Date: 20020715
  Transmission Date: 20041129
  Serious: Yes (Hospitalization)
  Sender: FDA-Public Use
  Company Number: WAES 0207USA01396

PATIENT
  Age: 57 Year
  Sex: Male
  Weight: 95 kg

DRUGS (7)
  1. FOSAMAX [Concomitant]
     Indication: OSTEITIS DEFORMANS
     Route: 048
  2. CELEBREX [Concomitant]
     Indication: ARTHRITIS
     Dates: start: 20000101, end: 20030101
  3. CELEBREX [Concomitant]
     Dates: start: 20030101
  4. CELEBREX [Concomitant]
     Indication: OSTEITIS DEFORMANS
     Dates: start: 20000101, end: 20030101
  5. CELEBREX [Concomitant]
     Dates: start: 20030101
  6. DURAGESIC [Concomitant]
     Indication: BACK PAIN
  7. VIOXX [Suspect]
     Indication: ARTHRITIS
     Route: 048
     Dates: start: 20010601, end: 20010625

REACTIONS (13)
  - ANGINA PECTORIS [None]
  - ANXIETY [None]
  - AORTIC ATHEROSCLEROSIS [None]
  - BRADYCARDIA [None]
  - CORONARY ARTERY DISEASE [None]
  - CORONARY ARTERY STENOSIS [None]
  - CORONARY OSTIAL STENOSIS [None]
  - HYPERTENSION [None]
  - INJURY [None]
  - MYOCARDIAL INFARCTION [None]
  - MYOCARDIAL ISCHAEMIA [None]
  - NERVOUSNESS [None]
  - VENTRICULAR HYPERTROPHY [None]
